FAERS Safety Report 18579244 (Version 1)
Quarter: 2020Q4

REPORT INFORMATION
  Report Type: Spontaneous
  Country: US (occurrence: US)
  Receive Date: 20201204
  Receipt Date: 20201204
  Transmission Date: 20210114
  Serious: No
  Sender: FDA-Public Use
  Company Number: US-ASTRAZENECA-2020SF49081

PATIENT
  Age: 44 Year
  Sex: Female
  Weight: 46.3 kg

DRUGS (4)
  1. CRESTOR [Suspect]
     Active Substance: ROSUVASTATIN CALCIUM
     Indication: BLOOD CHOLESTEROL INCREASED
     Dosage: 5 MG CRESTOR OR 5 MG ROSUVASTATIN (GENERIC)
     Route: 048
     Dates: end: 2019
  2. CRESTOR [Suspect]
     Active Substance: ROSUVASTATIN CALCIUM
     Indication: BLOOD CHOLESTEROL INCREASED
     Dosage: GENERIC??ROSUVASTATIN
     Route: 048
     Dates: end: 201910
  3. CRESTOR [Suspect]
     Active Substance: ROSUVASTATIN CALCIUM
     Indication: BLOOD CHOLESTEROL INCREASED
     Route: 048
     Dates: start: 2007
  4. CRESTOR [Suspect]
     Active Substance: ROSUVASTATIN CALCIUM
     Indication: BLOOD CHOLESTEROL INCREASED
     Dosage: GENERIC??ROSUVASTATIN (UNKNOWN DOSE)
     Route: 048
     Dates: start: 20201023

REACTIONS (6)
  - Weight decreased [Recovered/Resolved]
  - Contusion [Recovered/Resolved]
  - Hypoaesthesia [Not Recovered/Not Resolved]
  - Blood cholesterol decreased [Unknown]
  - Intentional product misuse [Unknown]
  - Arthralgia [Not Recovered/Not Resolved]

NARRATIVE: CASE EVENT DATE: 201908
